FAERS Safety Report 10036356 (Version 3)
Quarter: 2014Q2

REPORT INFORMATION
  Report Type: Report from Study
  Country: CA (occurrence: CA)
  Receive Date: 20140325
  Receipt Date: 20140618
  Transmission Date: 20141212
  Serious: Yes (Life-Threatening, Hospitalization)
  Sender: FDA-Public Use
  Company Number: CA-PFIZER INC-2014066528

PATIENT
  Age: 56 Year
  Sex: Female

DRUGS (11)
  1. TEMSIROLIMUS [Suspect]
     Indication: OVARIAN CANCER
     Dosage: 25 MG, CYCLIC, 6 WEEK CYCLE
     Route: 042
     Dates: start: 20140128, end: 20140225
  2. ALPRAZOLAM [Concomitant]
     Indication: INSOMNIA
     Dosage: UNK
     Dates: start: 201103
  3. ALPRAZOLAM [Concomitant]
     Dosage: UNK
     Dates: start: 201303
  4. COVERSYL [Concomitant]
     Indication: HYPERTENSION
     Dosage: UNK
     Dates: start: 2012
  5. ROSUVASTATIN [Concomitant]
     Indication: BLOOD CHOLESTEROL INCREASED
     Dosage: UNK
     Dates: start: 2012
  6. CITALOPRAM [Concomitant]
     Indication: MOOD ALTERED
     Dosage: UNK
     Dates: start: 201103
  7. CITALOPRAM [Concomitant]
     Indication: DEPRESSION
  8. PANTOLOC [Concomitant]
     Indication: GASTROOESOPHAGEAL REFLUX DISEASE
     Dosage: UNK
     Dates: start: 201311
  9. MAXERAN [Concomitant]
     Indication: GASTROOESOPHAGEAL REFLUX DISEASE
     Dosage: UNK
     Dates: start: 20140225
  10. STEMETIL [Concomitant]
     Dosage: UNK
     Dates: start: 20140127, end: 20140304
  11. BENADRYL [Concomitant]
     Indication: PROPHYLAXIS

REACTIONS (6)
  - Visceral arterial ischaemia [Recovered/Resolved with Sequelae]
  - Myocardial infarction [Recovered/Resolved with Sequelae]
  - Renal tubular necrosis [Recovered/Resolved with Sequelae]
  - Large intestine perforation [Not Recovered/Not Resolved]
  - Abdominal pain [Recovered/Resolved]
  - Non-cardiac chest pain [Not Recovered/Not Resolved]
